FAERS Safety Report 16905318 (Version 3)
Quarter: 2020Q2

REPORT INFORMATION
  Report Type: Spontaneous
  Country: US (occurrence: US)
  Receive Date: 20191010
  Receipt Date: 20200514
  Transmission Date: 20200713
  Serious: No
  Sender: FDA-Public Use
  Company Number: US-SA-2019SA275662

PATIENT
  Age: 42 Year
  Sex: Female

DRUGS (1)
  1. DUPIXENT [Suspect]
     Active Substance: DUPILUMAB
     Indication: DERMATITIS ATOPIC
     Dosage: 300 MG, QOW
     Route: 058
     Dates: start: 20190305

REACTIONS (8)
  - Pruritus [Unknown]
  - Erythema [Unknown]
  - Periorbital swelling [Unknown]
  - Dry eye [Unknown]
  - Erythema of eyelid [Unknown]
  - Vision blurred [Unknown]
  - Eyelids pruritus [Unknown]
  - Eyelid oedema [Unknown]
